FAERS Safety Report 18573675 (Version 1)
Quarter: 2020Q4

REPORT INFORMATION
  Report Type: Spontaneous
  Country: CN (occurrence: CN)
  Receive Date: 20201203
  Receipt Date: 20201203
  Transmission Date: 20210114
  Serious: Yes (Hospitalization, Other)
  Sender: FDA-Public Use
  Company Number: CN-GLAXOSMITHKLINE-CN2020APC233830

PATIENT
  Age: 4 Year
  Sex: Male
  Weight: 8.4 kg

DRUGS (2)
  1. LAMICTAL [Suspect]
     Active Substance: LAMOTRIGINE
     Indication: EPILEPSY
     Dosage: 5 MG, BID
     Route: 048
     Dates: start: 20201018, end: 20201028
  2. LAMICTAL [Suspect]
     Active Substance: LAMOTRIGINE
     Dosage: 5 MG, QD
     Route: 048
     Dates: start: 20201029, end: 20201031

REACTIONS (5)
  - Respiratory tract infection [Recovering/Resolving]
  - Rash maculo-papular [Recovering/Resolving]
  - Pyrexia [Recovering/Resolving]
  - Rash [Recovering/Resolving]
  - Nasal obstruction [Recovering/Resolving]

NARRATIVE: CASE EVENT DATE: 20201026
